FAERS Safety Report 9775289 (Version 5)
Quarter: 2014Q3

REPORT INFORMATION
  Report Type: Report from Study
  Country: JP (occurrence: JP)
  Receive Date: 20131220
  Receipt Date: 20140811
  Transmission Date: 20150326
  Serious: Yes (Death, Life-Threatening)
  Sender: FDA-Public Use
  Company Number: JP-SA-2013SA131753

PATIENT
  Age: 52 Year
  Sex: Female
  Weight: 39.4 kg

DRUGS (20)
  1. PRECEDEX [Concomitant]
     Active Substance: DEXMEDETOMIDINE HYDROCHLORIDE
     Indication: MECHANICAL VENTILATION
     Dates: end: 20120918
  2. HICALIQ [Concomitant]
     Indication: HYPOPHAGIA
     Dates: end: 20120918
  3. METOPROLOL TARTATE [Concomitant]
     Active Substance: METOPROLOL TARTRATE
     Indication: HYPOPHAGIA
     Dates: end: 20120918
  4. HUMULIN R [Concomitant]
     Active Substance: INSULIN HUMAN
     Indication: BLOOD GLUCOSE
     Dates: end: 20120918
  5. THYMOGLOBULINE [Suspect]
     Active Substance: LAPINE T-LYMPHOCYTE IMMUNE GLOBULIN
     Indication: GRAFT VERSUS HOST DISEASE IN LIVER
     Route: 042
     Dates: start: 20120831, end: 20120904
  6. DALACIN [Concomitant]
     Active Substance: CLINDAMYCIN\CLINDAMYCIN PHOSPHATE
     Indication: INFECTION
     Dates: end: 20120702
  7. OMEPRAL [Concomitant]
     Active Substance: OMEPRAZOLE
     Indication: NON-HODGKIN^S LYMPHOMA
     Dates: end: 20120918
  8. OMEGACIN [Concomitant]
     Active Substance: BIAPENEM
     Indication: INFECTION
     Dates: end: 20120822
  9. FUNGUARD [Concomitant]
     Active Substance: MICAFUNGIN SODIUM
     Indication: INFECTION
     Dates: end: 20120912
  10. VANCOMYCIN [Concomitant]
     Active Substance: VANCOMYCIN
     Indication: NON-HODGKIN^S LYMPHOMA
     Dates: end: 20120822
  11. VICCLOX [Concomitant]
     Active Substance: ACYCLOVIR SODIUM
     Indication: INFECTION
     Dates: end: 20120901
  12. MULTAMIN [Concomitant]
     Indication: HYPOPHAGIA
     Dates: end: 20120918
  13. VANCOMYCIN [Concomitant]
     Active Substance: VANCOMYCIN
     Indication: STAPHYLOCOCCAL INFECTION
     Dates: end: 20120822
  14. POLARAMINE [Concomitant]
     Active Substance: DEXCHLORPHENIRAMINE MALEATE
     Indication: PROPHYLAXIS
     Dates: end: 20120918
  15. THYMOGLOBULINE [Suspect]
     Active Substance: LAPINE T-LYMPHOCYTE IMMUNE GLOBULIN
     Indication: BONE MARROW CONDITIONING REGIMEN
     Route: 042
     Dates: start: 20120609, end: 20120611
  16. THYMOGLOBULINE [Suspect]
     Active Substance: LAPINE T-LYMPHOCYTE IMMUNE GLOBULIN
     Indication: GRAFT VERSUS HOST DISEASE IN LIVER
     Route: 042
     Dates: start: 20120609, end: 20120611
  17. THYMOGLOBULINE [Suspect]
     Active Substance: LAPINE T-LYMPHOCYTE IMMUNE GLOBULIN
     Indication: BONE MARROW CONDITIONING REGIMEN
     Route: 042
     Dates: start: 20120831, end: 20120904
  18. MAGNESIUM SULFATE [Concomitant]
     Active Substance: MAGNESIUM SULFATE
     Dates: end: 20120918
  19. AMIYU [Concomitant]
     Indication: HYPOPHAGIA
     Dates: end: 20120918
  20. SOL-MELCORT [Concomitant]
     Active Substance: METHYLPREDNISOLONE SODIUM SUCCINATE
     Indication: PROPHYLAXIS
     Dates: start: 20120609, end: 20120726

REACTIONS (3)
  - Stenotrophomonas infection [Not Recovered/Not Resolved]
  - Graft versus host disease in liver [Fatal]
  - Aspergillus infection [Fatal]

NARRATIVE: CASE EVENT DATE: 20120822
